FAERS Safety Report 19605494 (Version 3)
Quarter: 2021Q3

REPORT INFORMATION
  Report Type: Spontaneous
  Country: CH (occurrence: CH)
  Receive Date: 20210723
  Receipt Date: 20210903
  Transmission Date: 20211014
  Serious: No
  Sender: FDA-Public Use
  Company Number: CH-ABBVIE-21K-151-3998548-00

PATIENT
  Age: 32 Year
  Sex: Female
  Weight: 60 kg

DRUGS (8)
  1. ADALIMUMAB [Suspect]
     Active Substance: ADALIMUMAB
     Indication: MACULAR OEDEMA
  2. PREDNISONUM [Concomitant]
     Active Substance: PREDNISONE
     Indication: UVEITIS
  3. ADALIMUMAB [Suspect]
     Active Substance: ADALIMUMAB
     Indication: UVEITIS
     Route: 058
     Dates: start: 20200709, end: 20210218
  4. ADALIMUMAB [Suspect]
     Active Substance: ADALIMUMAB
     Indication: VITRITIS
  5. AZOPT [Concomitant]
     Active Substance: BRINZOLAMIDE
     Indication: PRODUCT USED FOR UNKNOWN INDICATION
     Route: 061
  6. PRED FORTE [Concomitant]
     Active Substance: PREDNISOLONE ACETATE
     Indication: MACULAR OEDEMA
     Route: 061
     Dates: start: 20190901, end: 20210407
  7. RINVOQ [Suspect]
     Active Substance: UPADACITINIB
     Indication: UVEITIS
     Route: 065
  8. ACETAZOLAMIDE. [Concomitant]
     Active Substance: ACETAZOLAMIDE
     Indication: MACULAR OEDEMA
     Route: 048
     Dates: start: 20210104, end: 20210407

REACTIONS (6)
  - Drug ineffective [Recovered/Resolved]
  - Paradoxical psoriasis [Recovered/Resolved]
  - Off label use [Unknown]
  - Parapsoriasis [Recovered/Resolved]
  - Therapeutic response unexpected [Unknown]
  - Paradoxical drug reaction [Recovered/Resolved]

NARRATIVE: CASE EVENT DATE: 20210118
